FAERS Safety Report 6183935-1 (Version None)
Quarter: 2009Q2

REPORT INFORMATION
  Report Type: 
  Country: None (occurrence: None)
  Receive Date: 20090508
  Receipt Date: 20090505
  Transmission Date: 20091009
  Serious: Yes (Hospitalization)
  Sender: FDA-Public Use
  Company Number: GB-PFIZER INC-2009208356

PATIENT

DRUGS (1)
  1. CARDURA [Suspect]
     Route: 048

REACTIONS (1)
  - GASTROSTOMY TUBE INSERTION [None]
